FAERS Safety Report 8086574 (Version 6)
Quarter: 2013Q3

REPORT INFORMATION
  Report Type: Spontaneous
  Country: US (occurrence: US)
  Receive Date: 20110811
  Receipt Date: 20130816
  Transmission Date: 20140515
  Serious: Yes (Hospitalization, Other)
  Sender: FDA-Public Use
  Company Number: US-009507513-1108USA01234

PATIENT
  Sex: Female
  Weight: 72.58 kg

DRUGS (12)
  1. FOSAMAX [Suspect]
     Indication: OSTEOPOROSIS
     Route: 048
     Dates: start: 199606
  2. FOSAMAX [Suspect]
     Dosage: 70 MG, QW
     Route: 048
     Dates: start: 2002, end: 200706
  3. FOSAMAX [Suspect]
     Dosage: 70 MG, QW
     Route: 048
     Dates: start: 20070905, end: 20080220
  4. FOSAMAX [Suspect]
     Dosage: 70 MG, QD
     Route: 048
     Dates: end: 2001
  5. FOSAMAX [Suspect]
     Indication: OSTEOPOROSIS
     Dosage: 70 MG, UNK
     Route: 048
  6. FOSAMAX [Suspect]
     Dosage: 70 MG, QD
     Route: 048
     Dates: start: 20090718, end: 200907
  7. ALENDRONATE SODIUM [Suspect]
     Indication: OSTEOPOROSIS
     Dosage: 70 MG, QW
     Route: 048
  8. ALENDRONATE SODIUM [Suspect]
     Dosage: 70 MG
     Route: 048
  9. VITAMINS (UNSPECIFIED) [Concomitant]
     Dosage: UNK UNK, QD
     Route: 048
     Dates: start: 1994
  10. VITAMIN D (UNSPECIFIED) [Concomitant]
     Dosage: 3000 IU, QD
     Dates: start: 1994
  11. CALCIUM (UNSPECIFIED) [Concomitant]
     Dosage: 500 MG, QD
     Dates: start: 1994
  12. ESTROGENS, ESTERIFIED (+) METHYLTESTOSTERONE [Concomitant]
     Dates: start: 199610

REACTIONS (47)
  - Pelvic fracture [Unknown]
  - Humerus fracture [Recovering/Resolving]
  - Lung disorder [Unknown]
  - Appendix disorder [Unknown]
  - Anaemia postoperative [Recovering/Resolving]
  - Intramedullary rod insertion [Recovering/Resolving]
  - Intramedullary rod insertion [Recovering/Resolving]
  - Femur fracture [Recovering/Resolving]
  - Femur fracture [Recovering/Resolving]
  - Osteonecrosis of jaw [Unknown]
  - Inappropriate schedule of drug administration [Recovered/Resolved]
  - Inappropriate schedule of drug administration [Unknown]
  - Anxiety [Not Recovered/Not Resolved]
  - Depression [Not Recovered/Not Resolved]
  - X-ray abnormal [Unknown]
  - Clavicle fracture [Unknown]
  - Somnambulism [Unknown]
  - Rib fracture [Recovering/Resolving]
  - Tooth disorder [Unknown]
  - Tooth disorder [Unknown]
  - Vitamin D deficiency [Unknown]
  - Foot fracture [Unknown]
  - Osteoarthritis [Not Recovered/Not Resolved]
  - Atelectasis [Recovered/Resolved]
  - Atelectasis [Recovering/Resolving]
  - Pulmonary fibrosis [Recovering/Resolving]
  - Cardiomegaly [Unknown]
  - Scoliosis [Unknown]
  - Fall [Unknown]
  - Scapula fracture [Unknown]
  - Abdominal injury [Unknown]
  - Atelectasis [Unknown]
  - Fall [Unknown]
  - Deformity [Unknown]
  - Scapula fracture [Unknown]
  - Skeletal injury [Unknown]
  - Rotator cuff syndrome [Unknown]
  - Insomnia [Unknown]
  - Foot fracture [Unknown]
  - Osteoarthritis [Unknown]
  - Osteopenia [Unknown]
  - Osteoarthritis [Unknown]
  - Kyphosis [Unknown]
  - Body height decreased [Unknown]
  - Musculoskeletal chest pain [Unknown]
  - Bone pain [Unknown]
  - Gastrooesophageal reflux disease [Unknown]
